FAERS Safety Report 19505729 (Version 5)
Quarter: 2021Q3

REPORT INFORMATION
  Report Type: Report from Study
  Country: US (occurrence: US)
  Receive Date: 20210708
  Receipt Date: 20210917
  Transmission Date: 20211014
  Serious: Yes (Hospitalization)
  Sender: FDA-Public Use
  Company Number: US-KARYOPHARM-2021KPT000854

PATIENT
  Age: 77 Year
  Sex: Male

DRUGS (14)
  1. TESTOSTERONE CYPIONATE. [Concomitant]
     Active Substance: TESTOSTERONE CYPIONATE
  2. NIFEDIPINE. [Concomitant]
     Active Substance: NIFEDIPINE
  3. SELINEXOR [Suspect]
     Active Substance: SELINEXOR
     Dosage: 40 MG, WEEKLY
     Dates: start: 20210705, end: 20210802
  4. SELINEXOR [Suspect]
     Active Substance: SELINEXOR
     Indication: MANTLE CELL LYMPHOMA
     Dosage: 40 MG, WEEKLY
     Route: 048
     Dates: start: 20181119, end: 20210618
  5. IBRUTINIB [Suspect]
     Active Substance: IBRUTINIB
     Indication: MANTLE CELL LYMPHOMA
     Dosage: 420 MG, QD
     Route: 048
     Dates: start: 20181119, end: 20210618
  6. POTASSIUM CHLORIDE. [Concomitant]
     Active Substance: POTASSIUM CHLORIDE
  7. TRAMADOL. [Concomitant]
     Active Substance: TRAMADOL
  8. ACYCLOVIR ACTAVIS [Concomitant]
     Active Substance: ACYCLOVIR
  9. ALPRAZOLAM. [Concomitant]
     Active Substance: ALPRAZOLAM
  10. TAMSULOSIN [Concomitant]
     Active Substance: TAMSULOSIN
  11. PROZAC [Concomitant]
     Active Substance: FLUOXETINE HYDROCHLORIDE
  12. BORON [Concomitant]
     Active Substance: BORON
  13. MELATONIN [Concomitant]
     Active Substance: MELATONIN
  14. ZOFRAN [Concomitant]
     Active Substance: ONDANSETRON HYDROCHLORIDE

REACTIONS (4)
  - Abdominal pain [Recovered/Resolved]
  - Staphylococcal bacteraemia [Not Recovered/Not Resolved]
  - Pyelonephritis [Recovered/Resolved]
  - Sepsis [Recovered/Resolved]

NARRATIVE: CASE EVENT DATE: 20210618
